FAERS Safety Report 19218139 (Version 1)
Quarter: 2021Q2

REPORT INFORMATION
  Report Type: Spontaneous
  Country: US (occurrence: US)
  Receive Date: 20210504
  Receipt Date: 20210504
  Transmission Date: 20210717
  Serious: No
  Sender: FDA-Public Use
  Company Number: None

PATIENT
  Age: 67 Year
  Sex: Female
  Weight: 52.2 kg

DRUGS (3)
  1. LIALDA [Concomitant]
     Active Substance: MESALAMINE
  2. U?DREAM ALL NATURAL HERBAL SUPPLEMENT [Suspect]
     Active Substance: HERBALS
     Indication: SLEEP DISORDER THERAPY
     Route: 048
  3. LEVOTHYROXIN [Concomitant]
     Active Substance: LEVOTHYROXINE

REACTIONS (1)
  - Amnesia [None]

NARRATIVE: CASE EVENT DATE: 20191109
